FAERS Safety Report 7295978-5 (Version None)
Quarter: 2011Q1

REPORT INFORMATION
  Report Type: 
  Country: None (occurrence: None)
  Receive Date: 20110216
  Receipt Date: 20110208
  Transmission Date: 20110831
  Serious: No
  Sender: FDA-Public Use
  Company Number: US-ABBOTT-09P-163-0613137-00

PATIENT
  Sex: Female
  Weight: 66.284 kg

DRUGS (2)
  1. SIMCOR [Suspect]
     Indication: LOW DENSITY LIPOPROTEIN INCREASED
     Dosage: 500/20 MILLIGRAMS DAILY AT BEDTIME
     Dates: start: 20090401
  2. SIMCOR [Suspect]
     Indication: BLOOD CHOLESTEROL INCREASED

REACTIONS (6)
  - PAIN IN EXTREMITY [None]
  - HOT FLUSH [None]
  - SKIN BURNING SENSATION [None]
  - PRURITUS [None]
  - OSTEOPOROSIS [None]
  - WEIGHT INCREASED [None]
